FAERS Safety Report 6021648-7 (Version None)
Quarter: 2008Q4

REPORT INFORMATION
  Report Type: 
  Country: None (occurrence: None)
  Receive Date: 20081229
  Receipt Date: 20081215
  Transmission Date: 20090506
  Serious: Yes (Death, Hospitalization, Other)
  Sender: FDA-Public Use
  Company Number: US-PFIZER INC-2008154212

PATIENT
  Age: 35 Year
  Sex: Male

DRUGS (3)
  1. ALPRAZOLAM [Suspect]
     Route: 051
  2. HALOPERIDOL [Suspect]
     Dosage: 10 MG, UNK
     Route: 030
  3. COCAINE [Suspect]
     Route: 051

REACTIONS (5)
  - ADVERSE REACTION [None]
  - CARDIAC ARREST [None]
  - DELIRIUM [None]
  - DELUSION [None]
  - HALLUCINATION [None]
